FAERS Safety Report 19969392 (Version 1)
Quarter: 2021Q4

REPORT INFORMATION
  Report Type: Spontaneous
  Country: CA (occurrence: CA)
  Receive Date: 20211019
  Receipt Date: 20211019
  Transmission Date: 20220304
  Serious: Yes (Hospitalization, Other)
  Sender: FDA-Public Use
  Company Number: CA-PFIZER INC-202101349196

PATIENT
  Age: 36 Year
  Sex: Male

DRUGS (7)
  1. CYTARABINE [Suspect]
     Active Substance: CYTARABINE
     Dosage: 388 MG, 2X/DAY (1 EVERY 12 HOURS)
     Route: 065
  2. ETOPOSIDE [Suspect]
     Active Substance: ETOPOSIDE
     Dosage: 194 MG, 2X/DAY (1 EVERY 12 HOURS)
     Route: 065
  3. FRAGMIN [Concomitant]
     Active Substance: DALTEPARIN SODIUM
  4. LASIX [Concomitant]
     Active Substance: FUROSEMIDE
     Route: 065
  5. NEXAVAR [Concomitant]
     Active Substance: SORAFENIB
  6. PANTOPRAZOLE SODIUM [Concomitant]
     Active Substance: PANTOPRAZOLE SODIUM
  7. TYLENOL [Concomitant]
     Active Substance: ACETAMINOPHEN

REACTIONS (3)
  - Bone marrow failure [Unknown]
  - Febrile neutropenia [Unknown]
  - Neutropenic colitis [Unknown]
